FAERS Safety Report 4833405-5 (Version None)
Quarter: 2005Q4

REPORT INFORMATION
  Report Type: 
  Country: None (occurrence: None)
  Receive Date: 20051117
  Receipt Date: 20051109
  Transmission Date: 20060501
  Serious: Yes (Hospitalization, Other)
  Sender: FDA-Public Use
  Company Number: 2005BH002900

PATIENT
  Age: 57 Year
  Sex: Male
  Weight: 74 kg

DRUGS (8)
  1. EXTRANEAL [Suspect]
     Indication: RENAL FAILURE CHRONIC
     Dosage: 2000 ML;EVERY DAY;IP
     Route: 033
     Dates: start: 20030902
  2. EPOGIN [Concomitant]
  3. CALTAN [Concomitant]
  4. MARZULENE S [Concomitant]
  5. ROHYPNOL [Concomitant]
  6. LAXOBERON [Concomitant]
  7. POLARAMINE [Concomitant]
  8. POSTERISAN [Concomitant]

REACTIONS (2)
  - ANGINA PECTORIS [None]
  - HAEMODIALYSIS [None]
